FAERS Safety Report 19138906 (Version 2)
Quarter: 2021Q2

REPORT INFORMATION
  Report Type: Spontaneous
  Country: BR (occurrence: BR)
  Receive Date: 20210415
  Receipt Date: 20210529
  Transmission Date: 20210717
  Serious: Yes (Death, Other)
  Sender: FDA-Public Use
  Company Number: BR-ROCHE-2811738

PATIENT
  Sex: Male

DRUGS (1)
  1. TOCILIZUMAB. [Suspect]
     Active Substance: TOCILIZUMAB
     Indication: COVID-19
     Route: 042
     Dates: start: 20210402, end: 20210402

REACTIONS (4)
  - Oxygen therapy [Unknown]
  - Off label use [Unknown]
  - COVID-19 [Unknown]
  - COVID-19 [Fatal]

NARRATIVE: CASE EVENT DATE: 20210402
